FAERS Safety Report 6793832-6 (Version None)
Quarter: 2010Q2

REPORT INFORMATION
  Report Type: 
  Country: None (occurrence: None)
  Receive Date: 20100624
  Receipt Date: 20090310
  Transmission Date: 20101027
  Serious: Yes (Other)
  Sender: FDA-Public Use
  Company Number: US-PFIZER INC-2009181110

PATIENT
  Weight: 73 kg

DRUGS (12)
  1. PROVERA [Suspect]
     Indication: HYSTERECTOMY
     Dosage: 5 MG, UNK
     Dates: start: 19880101, end: 19890101
  2. PROVERA [Suspect]
     Indication: HOT FLUSH
  3. PREMARIN [Suspect]
     Indication: HYSTERECTOMY
     Dosage: 0.625 MG, UNK
     Dates: start: 19880101, end: 20020101
  4. PREMARIN [Suspect]
     Indication: HOT FLUSH
     Dosage: 0.9 MG, UNK
     Dates: start: 19880101, end: 20020101
  5. ESTROGENS [Suspect]
     Dosage: UNK
     Dates: end: 19760101
  6. PREVACID [Concomitant]
     Indication: HIATUS HERNIA
     Dosage: UNK
  7. PREVACID [Concomitant]
     Indication: GASTROOESOPHAGEAL REFLUX DISEASE
  8. OXYCONTIN [Concomitant]
     Indication: PAIN
     Dosage: UNK
     Dates: start: 20000101
  9. ROXICODONE [Concomitant]
     Indication: BREAKTHROUGH PAIN
     Dosage: UNK
     Dates: start: 20000101
  10. XANAX [Concomitant]
     Indication: STRESS
     Dosage: UNK
     Dates: start: 20000101
  11. XANAX [Concomitant]
     Indication: ANXIETY
  12. XANAX [Concomitant]
     Indication: DEPRESSION

REACTIONS (1)
  - BREAST CANCER [None]
